FAERS Safety Report 7465671-4 (Version None)
Quarter: 2011Q2

REPORT INFORMATION
  Report Type: 
  Country: None (occurrence: None)
  Receive Date: 20110509
  Receipt Date: 20110429
  Transmission Date: 20111010
  Serious: Yes (Other)
  Sender: FDA-Public Use
  Company Number: A0926313A

PATIENT
  Age: 46 Year
  Sex: Male

DRUGS (2)
  1. UNKNOWN MEDICATION [Suspect]
  2. LAMICTAL [Suspect]
     Indication: EPILEPSY
     Route: 065

REACTIONS (6)
  - DRUG INTERACTION [None]
  - CONVULSION [None]
  - ADVERSE DRUG REACTION [None]
  - GRAND MAL CONVULSION [None]
  - PETIT MAL EPILEPSY [None]
  - DRUG INEFFECTIVE [None]
